FAERS Safety Report 5331672-5 (Version None)
Quarter: 2007Q2

REPORT INFORMATION
  Report Type: 
  Country: None (occurrence: None)
  Receive Date: 20070516
  Receipt Date: 20070504
  Transmission Date: 20071010
  Serious: Yes (Other)
  Sender: FDA-Public Use
  Company Number: SPV1-2007-02565

PATIENT
  Sex: Female

DRUGS (1)
  1. DAYTRANA [Suspect]

REACTIONS (1)
  - CONVULSION [None]
